FAERS Safety Report 21983796 (Version 1)
Quarter: 2023Q1

REPORT INFORMATION
  Report Type: Spontaneous
  Country: US (occurrence: US)
  Receive Date: 20230213
  Receipt Date: 20230213
  Transmission Date: 20230418
  Serious: No
  Sender: FDA-Public Use
  Company Number: US-SANOFI-01485912

PATIENT
  Sex: Female

DRUGS (6)
  1. LANTUS SOLOSTAR [Suspect]
     Active Substance: INSULIN GLARGINE
     Indication: Type 2 diabetes mellitus
     Dosage: 55 U, BID
  2. GLIPIZIDE [Concomitant]
     Active Substance: GLIPIZIDE
  3. GLIPIZIDE [Concomitant]
     Active Substance: GLIPIZIDE
  4. LEVEMIR [Concomitant]
     Active Substance: INSULIN DETEMIR
  5. LANTUS [Concomitant]
     Active Substance: INSULIN GLARGINE
  6. JANUMET [Concomitant]
     Active Substance: METFORMIN HYDROCHLORIDE\SITAGLIPTIN PHOSPHATE

REACTIONS (1)
  - Inappropriate schedule of product administration [Unknown]
